FAERS Safety Report 8672769 (Version 2)
Quarter: 2012Q4

REPORT INFORMATION
  Report Type: 
  Country: US (occurrence: US)
  Receive Date: 20120719
  Receipt Date: 20120831
  Transmission Date: 20130627
  Serious: Yes (Hospitalization, Other)
  Sender: FDA-Public Use
  Company Number: US-AMGEN-USASP2012044029

PATIENT
  Age: 57 Year
  Sex: Female
  Weight: 79.37 kg

DRUGS (4)
  1. PROCRIT [Suspect]
     Indication: ANAEMIA
     Dosage: 40000 IU, qwk
     Route: 058
     Dates: start: 20120531
  2. PEGASYS [Concomitant]
     Indication: HEPATITIS C
     Dosage: 180 mug, qwk
     Route: 058
     Dates: start: 20120526
  3. RIBAVIRIN [Concomitant]
     Indication: HEPATITIS C
     Dosage: 200 mg, qd
     Route: 048
     Dates: start: 20120526
  4. INCIVEK [Concomitant]
     Indication: HEPATITIS C
     Dosage: 375 mg, q8h
     Route: 048
     Dates: start: 20120526

REACTIONS (10)
  - Somnolence [Recovered/Resolved]
  - Oedema mouth [Recovered/Resolved]
  - Oral candidiasis [Recovered/Resolved]
  - Blood count abnormal [Recovered/Resolved]
  - Asthenia [Recovered/Resolved]
  - Chills [Recovered/Resolved]
  - Malaise [Not Recovered/Not Resolved]
  - Incorrect storage of drug [Not Recovered/Not Resolved]
  - Product contamination [Unknown]
  - Pyrexia [Not Recovered/Not Resolved]
